FAERS Safety Report 12966891 (Version 1)
Quarter: 2016Q4

REPORT INFORMATION
  Report Type: Spontaneous
  Country: US (occurrence: US)
  Receive Date: 20161121
  Receipt Date: 20161121
  Transmission Date: 20170207
  Serious: Yes (Hospitalization)
  Sender: FDA-Public Use
  Company Number: None

PATIENT
  Age: 61 Year
  Sex: Male

DRUGS (1)
  1. XELJANZ [Suspect]
     Active Substance: TOFACITINIB CITRATE
     Indication: RHEUMATOID ARTHRITIS
     Dates: start: 20160728, end: 20161020

REACTIONS (6)
  - Blood pressure increased [None]
  - Peripheral swelling [None]
  - Weight increased [None]
  - Heart rate increased [None]
  - Oedema peripheral [None]
  - Swelling face [None]

NARRATIVE: CASE EVENT DATE: 20161020
